FAERS Safety Report 17469631 (Version 1)
Quarter: 2020Q1

REPORT INFORMATION
  Report Type: Spontaneous
  Country: CN (occurrence: CN)
  Receive Date: 20200227
  Receipt Date: 20200227
  Transmission Date: 20200409
  Serious: Yes (Hospitalization, Other)
  Sender: FDA-Public Use
  Company Number: CN-CASPER PHARMA LLC-2020CAS000080

PATIENT
  Age: 23 Year
  Sex: Female

DRUGS (1)
  1. PENICILLIN G BENZATHINE [Suspect]
     Active Substance: PENICILLIN G BENZATHINE
     Indication: PROPHYLAXIS
     Dosage: 200 UNITS OF PENICILLIN IN 0.1 ML
     Route: 023

REACTIONS (3)
  - Anaphylactic reaction [Recovered/Resolved]
  - Stillbirth [Recovered/Resolved]
  - Exposure during pregnancy [Unknown]
